FAERS Safety Report 14448235 (Version 8)
Quarter: 2018Q4

REPORT INFORMATION
  Report Type: Spontaneous
  Country: US (occurrence: US)
  Receive Date: 20180126
  Receipt Date: 20181003
  Transmission Date: 20190204
  Serious: Yes (Other)
  Sender: FDA-Public Use
  Company Number: US-ACTELION-A-NJ2018-166304

PATIENT
  Age: 62 Year
  Sex: Female
  Weight: 54.42 kg

DRUGS (4)
  1. UPTRAVI [Suspect]
     Active Substance: SELEXIPAG
     Indication: PULMONARY HYPERTENSION
     Dosage: 400 MCG, QD
     Route: 048
  2. UPTRAVI [Suspect]
     Active Substance: SELEXIPAG
     Dosage: 200 MCG, BID
     Route: 048
  3. OPSUMIT [Suspect]
     Active Substance: MACITENTAN
     Indication: PULMONARY HYPERTENSION
     Dosage: UNK
     Route: 048
  4. UPTRAVI [Suspect]
     Active Substance: SELEXIPAG
     Dosage: 600 MCG, BID
     Route: 048

REACTIONS (18)
  - Headache [Unknown]
  - Constipation [Unknown]
  - Orthostatic hypotension [Unknown]
  - Syncope [Unknown]
  - Asthenia [Unknown]
  - Muscle spasms [Unknown]
  - Chest discomfort [Unknown]
  - Condition aggravated [Unknown]
  - Hypotension [Unknown]
  - Dyspnoea [Unknown]
  - Rectal discharge [Unknown]
  - Muscular weakness [Unknown]
  - Intermittent claudication [Unknown]
  - Micturition urgency [Unknown]
  - Dialysis [Unknown]
  - Photosensitivity reaction [Unknown]
  - Diarrhoea [Recovering/Resolving]
  - Flatulence [Unknown]

NARRATIVE: CASE EVENT DATE: 20180730
